FAERS Safety Report 7041819-0 (Version None)
Quarter: 2010Q4

REPORT INFORMATION
  Report Type: 
  Country: None (occurrence: None)
  Receive Date: 20101013
  Receipt Date: 20100927
  Transmission Date: 20110411
  Serious: Yes (Hospitalization)
  Sender: FDA-Public Use
  Company Number: CA-ROCHE-732218

PATIENT
  Sex: Female
  Weight: 42.7 kg

DRUGS (12)
  1. TRASTUZUMAB [Suspect]
     Dosage: FORM: INFUSION.LAST DOSE PRIOR TO SAE: 15 SEPTEMBER 2010.
     Route: 042
     Dates: start: 20100602
  2. PERTUZUMAB [Suspect]
     Dosage: ORM: INFUSION. LAST DOSE PRIOR TO SAE: 15 SEPTEMBER 2010.
     Route: 042
     Dates: start: 20100602
  3. DOCETAXEL [Suspect]
     Dosage: FORM: INFUSION. LAST DOSE PRIOR TO SAE: 15 SEPTEMBER 2010.
     Route: 042
     Dates: start: 20100602
  4. CARBOPLATIN [Suspect]
     Dosage: FORM: INFUSION. LAST DOSE PRIOR TO SAE: 15 SEPTEMBER 2010.
     Route: 042
     Dates: start: 20100602
  5. MAXERAN [Concomitant]
     Dates: start: 20100623, end: 20100916
  6. CALCIUM/VITAMIN D [Concomitant]
     Dates: start: 20020101, end: 20100915
  7. MULTI-VITAMIN [Concomitant]
     Dates: start: 20000101, end: 20100915
  8. POLYSPORIN OINTMENT [Concomitant]
     Dosage: TOTAL DAILY DOSE:AS PER NECCESSARY
     Dates: start: 20100730, end: 20100916
  9. LOMOTIL [Concomitant]
     Dates: start: 20100803, end: 20100803
  10. ACTONEL [Concomitant]
     Dates: start: 20080101
  11. IMOVANE [Concomitant]
     Dates: start: 20100601
  12. HYDROCHLOROTHIAZIDE [Concomitant]
     Dates: start: 20100601

REACTIONS (1)
  - SMALL INTESTINAL OBSTRUCTION [None]
